FAERS Safety Report 9469101 (Version 1)
Quarter: 2013Q3

REPORT INFORMATION
  Report Type: Spontaneous
  Country: ES (occurrence: None)
  Receive Date: 20130815
  Receipt Date: 20130815
  Transmission Date: 20140515
  Serious: Yes (Death)
  Sender: FDA-Public Use
  Company Number: KAD201308-000990

PATIENT
  Sex: 0

DRUGS (1)
  1. RIBAVIRIN (RIBAVIRIN) [Suspect]
     Indication: HEPATITIS C

REACTIONS (2)
  - No therapeutic response [None]
  - Bronchial carcinoma [None]
